FAERS Safety Report 24341355 (Version 1)
Quarter: 2024Q3

REPORT INFORMATION
  Report Type: Spontaneous
  Country: JP (occurrence: JP)
  Receive Date: 20240920
  Receipt Date: 20240920
  Transmission Date: 20241016
  Serious: Yes (Other)
  Sender: GENMAB
  Company Number: JP-GENMAB-2024-03323

PATIENT

DRUGS (5)
  1. EPKINLY [Suspect]
     Active Substance: EPCORITAMAB-BYSP
     Indication: Product used for unknown indication
     Dosage: UNK
     Route: 065
  2. EPKINLY [Suspect]
     Active Substance: EPCORITAMAB-BYSP
     Dosage: 48 MILLIGRAM
     Route: 065
  3. DECADRON [Concomitant]
     Active Substance: DEXAMETHASONE
     Indication: Premedication
     Dosage: 16 MILLIGRAM, ONLY CYCLE 1 OF EPKINLY, 60 MINUTES BEFORE EPKINLY ADMINISTRATION
     Route: 048
  4. FEXOFENADINE [Concomitant]
     Active Substance: FEXOFENADINE HYDROCHLORIDE
     Indication: Premedication
     Dosage: 60 MILLIGRAM, ONLY CYCLE 1 OF EPKINLY, 60 MINUTES BEFORE EPKINLY ADMINISTRATION
     Route: 048
  5. CALONAL [Concomitant]
     Active Substance: ACETAMINOPHEN
     Indication: Premedication
     Dosage: 800 MILLIGRAM, ONLY CYCLE 1 OF EPKINLY, 60 MINUTES BEFORE EPKINLY ADMINISTRATION
     Route: 048

REACTIONS (3)
  - Delirium [Unknown]
  - Headache [Unknown]
  - Pyrexia [Recovered/Resolved]
